FAERS Safety Report 17292299 (Version 1)
Quarter: 2020Q1

REPORT INFORMATION
  Report Type: Spontaneous
  Country: DE (occurrence: DE)
  Receive Date: 20200121
  Receipt Date: 20200121
  Transmission Date: 20200409
  Serious: Yes (Other)
  Sender: FDA-Public Use
  Company Number: DE-HETERO-HET2020DE00050

PATIENT
  Age: 30 Year
  Sex: Male
  Weight: 63 kg

DRUGS (1)
  1. ESCITALOPRAM [Suspect]
     Active Substance: ESCITALOPRAM OXALATE
     Indication: DEPRESSED MOOD
     Dosage: 10-20 MG
     Route: 048
     Dates: start: 20150901, end: 20151015

REACTIONS (1)
  - Erectile dysfunction [Recovered/Resolved with Sequelae]

NARRATIVE: CASE EVENT DATE: 20150909
